FAERS Safety Report 15426975 (Version 3)
Quarter: 2019Q1

REPORT INFORMATION
  Report Type: Report from Study
  Country: CO (occurrence: CO)
  Receive Date: 20180925
  Receipt Date: 20190116
  Transmission Date: 20190417
  Serious: Yes (Hospitalization)
  Sender: FDA-Public Use
  Company Number: CO-ACTELION-A-US2018-179307

PATIENT
  Age: 79 Year
  Sex: Female

DRUGS (12)
  1. BOSENTAN. [Concomitant]
     Active Substance: BOSENTAN
  2. NEVIBOLOL DCI [Concomitant]
     Active Substance: NEBIVOLOL
  3. ERYTHROMYCIN. [Concomitant]
     Active Substance: ERYTHROMYCIN
  4. BISACODYL. [Concomitant]
     Active Substance: BISACODYL
  5. ESOMEPRAZOLE. [Concomitant]
     Active Substance: ESOMEPRAZOLE MAGNESIUM
  6. VENTAVIS [Suspect]
     Active Substance: ILOPROST
     Indication: PULMONARY ARTERIAL HYPERTENSION
     Dosage: 2.5 MCG/24HR, 6ID
     Route: 055
     Dates: start: 20180918
  7. ATORVASTATIN [Concomitant]
     Active Substance: ATORVASTATIN
  8. FUROSEMIDE. [Concomitant]
     Active Substance: FUROSEMIDE
  9. APIXABAN [Concomitant]
     Active Substance: APIXABAN
  10. VENTAVIS [Suspect]
     Active Substance: ILOPROST
     Dosage: 5 U/G, 6ID
     Route: 055
  11. VENTAVIS [Suspect]
     Active Substance: ILOPROST
     Dosage: UNK
     Route: 055
  12. LEVOTHYROXINE. [Concomitant]
     Active Substance: LEVOTHYROXINE

REACTIONS (2)
  - Hospitalisation [Unknown]
  - Product prescribing error [Not Recovered/Not Resolved]

NARRATIVE: CASE EVENT DATE: 20180918
